FAERS Safety Report 12721813 (Version 1)
Quarter: 2016Q3

REPORT INFORMATION
  Report Type: Other
  Country: US (occurrence: US)
  Receive Date: 20160907
  Receipt Date: 20160907
  Transmission Date: 20161109
  Serious: No
  Sender: FDA-Public Use
  Company Number: US-COL_20818_2015

PATIENT
  Sex: Female

DRUGS (1)
  1. COLGATE TOTAL WHITENING GEL [Suspect]
     Active Substance: SODIUM FLUORIDE\TRICLOSAN
     Indication: PRODUCT USED FOR UNKNOWN INDICATION
     Dosage: FILLED THE WHOLE BRISTLES/BID/
     Route: 048
     Dates: start: 20150923, end: 20150927

REACTIONS (3)
  - Toothache [Recovered/Resolved]
  - Sensitivity of teeth [Recovered/Resolved]
  - Oral discomfort [Recovered/Resolved]

NARRATIVE: CASE EVENT DATE: 20150923
